FAERS Safety Report 8306480-3 (Version None)
Quarter: 2012Q2

REPORT INFORMATION
  Report Type: 
  Country: None (occurrence: None)
  Receive Date: 20120424
  Receipt Date: 20120416
  Transmission Date: 20120825
  Serious: Yes (Death, Hospitalization, Other)
  Sender: FDA-Public Use
  Company Number: US-BIOGENIDEC-2011BI036277

PATIENT
  Age: 56 Year
  Sex: Female
  Weight: 64 kg

DRUGS (23)
  1. FOSAMAX [Concomitant]
     Indication: OSTEOPOROSIS
     Route: 048
  2. DRISDOL LS [Concomitant]
     Indication: VITAMIN SUPPLEMENTATION
  3. KLOR-CON [Concomitant]
     Route: 048
  4. MELATONIN [Concomitant]
     Indication: INSOMNIA
     Route: 048
  5. SANCTURA XR [Concomitant]
     Route: 048
  6. MIRALAX [Concomitant]
     Indication: CONSTIPATION
     Route: 048
  7. TRAZODONE HCL [Concomitant]
     Route: 048
  8. LORATADINE [Concomitant]
     Indication: HYPERSENSITIVITY
     Route: 048
  9. CLARITIN [Concomitant]
     Route: 048
  10. FERROUS SULFATE TAB [Concomitant]
     Route: 048
  11. VICODIN [Concomitant]
     Indication: PAIN
     Route: 048
  12. AMBIEN [Concomitant]
     Route: 048
  13. DICLOFENAC POTASSIUM [Concomitant]
     Route: 048
  14. CITALOPRAM HYDROBROMIDE [Concomitant]
     Indication: DEPRESSION
     Route: 048
  15. COLACE [Concomitant]
     Route: 048
  16. XANAX [Concomitant]
     Indication: ANXIETY
     Route: 048
  17. ASPIRIN [Concomitant]
     Indication: FACTOR V LEIDEN MUTATION
     Route: 048
  18. NEXIUM [Concomitant]
     Indication: GASTROOESOPHAGEAL REFLUX DISEASE
     Route: 048
  19. PROVIGIL [Concomitant]
     Route: 048
  20. BACLOFEN [Concomitant]
     Indication: MUSCLE SPASTICITY
     Route: 048
  21. VICODIN [Concomitant]
     Route: 048
  22. TYSABRI [Suspect]
     Indication: MULTIPLE SCLEROSIS
     Route: 042
     Dates: start: 20080110, end: 20110701
  23. LASIX [Concomitant]
     Route: 048

REACTIONS (4)
  - DEATH [None]
  - PROGRESSIVE MULTIFOCAL LEUKOENCEPHALOPATHY [None]
  - ALTERED STATE OF CONSCIOUSNESS [None]
  - MULTIPLE SCLEROSIS RELAPSE [None]
